FAERS Safety Report 17135408 (Version 1)
Quarter: 2019Q4

REPORT INFORMATION
  Report Type: Spontaneous
  Country: DE (occurrence: DE)
  Receive Date: 20191210
  Receipt Date: 20191210
  Transmission Date: 20200122
  Serious: Yes (Other)
  Sender: FDA-Public Use
  Company Number: DE-ASTRAZENECA-2019SF73410

PATIENT
  Age: 44 Year
  Sex: Male
  Weight: 92 kg

DRUGS (8)
  1. AMLODIPIN [Concomitant]
     Active Substance: AMLODIPINE BESYLATE
     Dosage: 5 MG, 1-0-0
     Route: 048
     Dates: start: 201902
  2. ELIQUIS [Concomitant]
     Active Substance: APIXABAN
     Dosage: 1-0-1
     Dates: start: 20190812
  3. EPLERENON [Concomitant]
     Active Substance: EPLERENONE
     Indication: CARDIAC FAILURE
     Dosage: 25 MG, 1-0-0
     Route: 048
  4. MONO EMBOLEX [Concomitant]
     Active Substance: CERTOPARIN SODIUM
     Indication: ATRIAL FLUTTER
     Dosage: 8000 IE, 1-0-1
     Dates: start: 20190729, end: 20190811
  5. FASENRA [Suspect]
     Active Substance: BENRALIZUMAB
     Indication: ASTHMA
     Dosage: 30.0MG UNKNOWN
     Route: 058
     Dates: start: 20190206, end: 20190528
  6. NEBIVOLOL. [Concomitant]
     Active Substance: NEBIVOLOL
     Indication: CARDIAC FAILURE
     Dosage: 5 MG, 1-0-0
     Route: 048
  7. PREDNISOLON [Concomitant]
     Active Substance: PREDNISOLONE
     Dosage: 5 MG, 1-0-0
  8. RAMIPRIL. [Concomitant]
     Active Substance: RAMIPRIL
     Indication: CARDIAC FAILURE
     Dosage: 10 MG, 1-0-0
     Route: 048

REACTIONS (7)
  - Eczema [Unknown]
  - Dermatitis atopic [Unknown]
  - Erythema [Unknown]
  - Skin texture abnormal [Unknown]
  - Cardiac failure [Unknown]
  - Dry skin [Unknown]
  - Cardiomyopathy [Unknown]
